FAERS Safety Report 5999692-5 (Version None)
Quarter: 2008Q4

REPORT INFORMATION
  Report Type: 
  Country: None (occurrence: None)
  Receive Date: 20081215
  Receipt Date: 20081204
  Transmission Date: 20090506
  Serious: Yes (Other)
  Sender: FDA-Public Use
  Company Number: IE-NOVOPROD-282063

PATIENT
  Age: 25 Year
  Sex: Male

DRUGS (1)
  1. NOVORAPID FLEXPEN [Suspect]
     Indication: INTENTIONAL DRUG MISUSE
     Dates: start: 20081203

REACTIONS (2)
  - BLOOD GLUCOSE DECREASED [None]
  - INTENTIONAL DRUG MISUSE [None]
